FAERS Safety Report 9424499 (Version 3)
Quarter: 2013Q3

REPORT INFORMATION
  Report Type: Spontaneous
  Country: DE (occurrence: None)
  Receive Date: 20130725
  Receipt Date: 20130812
  Transmission Date: 20140515
  Serious: Yes (Hospitalization)
  Sender: FDA-Public Use
  Company Number: TPG2013A00796

PATIENT
  Age: 82 Year
  Sex: Female

DRUGS (1)
  1. EDARBI [Suspect]
     Indication: ESSENTIAL HYPERTENSION
     Dosage: (40 MG, 1 IN 1 D)
     Route: 048
     Dates: start: 20120302, end: 201302

REACTIONS (12)
  - Cerebrovascular accident [None]
  - Transient ischaemic attack [None]
  - Atrial fibrillation [None]
  - Peripheral arterial occlusive disease [None]
  - Oedema due to cardiac disease [None]
  - Haemoglobin decreased [None]
  - Cardiac failure [None]
  - Febrile infection [None]
  - Confusional state [None]
  - Hypertensive crisis [None]
  - Tricuspid valve incompetence [None]
  - Bladder disorder [None]
